FAERS Safety Report 14562144 (Version 1)
Quarter: 2018Q1

REPORT INFORMATION
  Report Type: Spontaneous
  Country: ES (occurrence: ES)
  Receive Date: 20180222
  Receipt Date: 20180222
  Transmission Date: 20180509
  Serious: Yes (Hospitalization, Other)
  Sender: FDA-Public Use
  Company Number: ES-HORIZON-PRE-0063-2018

PATIENT
  Age: 45 Year
  Sex: Male

DRUGS (7)
  1. ROACTEMRA [Suspect]
     Active Substance: TOCILIZUMAB
     Indication: RHEUMATOID ARTHRITIS
     Dates: start: 20091201, end: 20100604
  2. CERTOLIZUMAB [Suspect]
     Active Substance: CERTOLIZUMAB
     Indication: PRODUCT USED FOR UNKNOWN INDICATION
     Dates: start: 20130301
  3. ACFOL [Suspect]
     Active Substance: FOLIC ACID
     Indication: PRODUCT USED FOR UNKNOWN INDICATION
     Dosage: 5 ?G/KG PER DAY
  4. PREDNISONE. [Suspect]
     Active Substance: PREDNISONE
     Indication: PRODUCT USED FOR UNKNOWN INDICATION
     Dosage: OCT/2014 WITH A NEW DOSE REDUCTION IN JUN/2015 ()
     Route: 065
     Dates: start: 20141001
  5. METHOTREXATE. [Suspect]
     Active Substance: METHOTREXATE
     Indication: PRODUCT USED FOR UNKNOWN INDICATION
     Dosage: 20 MG/WEEK
     Route: 065
  6. CIMZIA [Suspect]
     Active Substance: CERTOLIZUMAB PEGOL
     Indication: PRODUCT USED FOR UNKNOWN INDICATION
     Dosage: EVERY 14 DAYS
     Route: 065
  7. LEFLUNOMIDE. [Suspect]
     Active Substance: LEFLUNOMIDE
     Indication: PRODUCT USED FOR UNKNOWN INDICATION

REACTIONS (12)
  - Drug intolerance [Unknown]
  - Pneumonia [Unknown]
  - Rhinitis allergic [Unknown]
  - Asthma [Unknown]
  - Pleural effusion [Unknown]
  - Eosinophilia [Unknown]
  - Deafness neurosensory [Unknown]
  - Ill-defined disorder [Unknown]
  - Sleep apnoea syndrome [Unknown]
  - Face oedema [Unknown]
  - Bursitis [Unknown]
  - Asthma [Unknown]

NARRATIVE: CASE EVENT DATE: 20101201
